FAERS Safety Report 6288778-6 (Version None)
Quarter: 2009Q3

REPORT INFORMATION
  Report Type: 
  Country: None (occurrence: None)
  Receive Date: 20090727
  Receipt Date: 20090406
  Transmission Date: 20100115
  Serious: Yes (Hospitalization)
  Sender: FDA-Public Use
  Company Number: 2009AP001382

PATIENT
  Age: 72 Year
  Sex: Male

DRUGS (5)
  1. CLARITHROMYCIN [Suspect]
     Indication: RESPIRATORY TRACT INFECTION
  2. ACETAMINOPHEN [Suspect]
     Indication: RESPIRATORY TRACT INFECTION
  3. IBUPROFEN [Suspect]
     Indication: RESPIRATORY TRACT INFECTION
  4. AMOXICILLIN TRIHYDRATE [Suspect]
     Indication: RESPIRATORY TRACT INFECTION
  5. IMATINIB MESYLATE [Concomitant]

REACTIONS (8)
  - ANAL ABSCESS [None]
  - APLASTIC ANAEMIA [None]
  - BLOOD CULTURE POSITIVE [None]
  - ENTEROCOCCAL INFECTION [None]
  - FUNGAL INFECTION [None]
  - PANCYTOPENIA [None]
  - PYREXIA [None]
  - STENOTROPHOMONAS INFECTION [None]
